FAERS Safety Report 11178912 (Version 1)
Quarter: 2015Q2

REPORT INFORMATION
  Report Type: Spontaneous
  Country: SE (occurrence: SE)
  Receive Date: 20150610
  Receipt Date: 20150610
  Transmission Date: 20150821
  Serious: Yes (Hospitalization)
  Sender: FDA-Public Use
  Company Number: SE-ELI_LILLY_AND_COMPANY-SE201504009308

PATIENT
  Age: 48 Year
  Sex: Male

DRUGS (6)
  1. ZYPADHERA [Suspect]
     Active Substance: OLANZAPINE PAMOATE
     Dosage: 300MG, Q 2 WEEKS
     Route: 030
     Dates: start: 20141126, end: 20150118
  2. ZYPADHERA [Suspect]
     Active Substance: OLANZAPINE PAMOATE
     Dosage: 300MG Q 2 WEEKS
     Route: 030
     Dates: start: 20140109, end: 20140722
  3. ZYPADHERA [Suspect]
     Active Substance: OLANZAPINE PAMOATE
     Indication: SCHIZOPHRENIA
     Dosage: 300 MG Q TWO WEEKS
     Route: 030
     Dates: start: 20130902, end: 20131124
  4. ZYPADHERA [Suspect]
     Active Substance: OLANZAPINE PAMOATE
     Dosage: 405MG, Q 2 WEEKS
     Route: 030
     Dates: start: 20131125, end: 20140108
  5. ZYPADHERA [Suspect]
     Active Substance: OLANZAPINE PAMOATE
     Dosage: 300 MG, 2/M
     Route: 030
     Dates: start: 20150409
  6. ZYPADHERA [Suspect]
     Active Substance: OLANZAPINE PAMOATE
     Dosage: 405 MG, 2/M
     Route: 030
     Dates: start: 20150119, end: 20150408

REACTIONS (3)
  - Pancreatitis [Unknown]
  - Prescribed overdose [Unknown]
  - Cytomegalovirus hepatitis [Unknown]

NARRATIVE: CASE EVENT DATE: 201406
